FAERS Safety Report 5159021-6 (Version None)
Quarter: 2006Q4

REPORT INFORMATION
  Report Type: 
  Country: None (occurrence: None)
  Receive Date: 20061117
  Receipt Date: 20061108
  Transmission Date: 20070319
  Serious: Yes (Life-Threatening, Hospitalization)
  Sender: FDA-Public Use
  Company Number: GXKR2006GB07200

PATIENT
  Age: 89 Year
  Sex: Female

DRUGS (7)
  1. ASPIRIN [Suspect]
     Dosage: 75 MG, QD; ORAL
     Route: 048
     Dates: start: 20040101, end: 20061017
  2. NAPROXEN [Suspect]
     Dosage: 250 MG, QID; ORAL
     Route: 048
     Dates: start: 20050110, end: 20061017
  3. ATENOLOL [Concomitant]
  4. ACETAMINOPHEN [Concomitant]
  5. SENNA (SENNA, SENNA ALEXANDRINA) [Concomitant]
  6. TEMAZEPAM [Concomitant]
  7. TRAMADOL HCL [Concomitant]

REACTIONS (2)
  - DUODENAL ULCER [None]
  - HAEMATEMESIS [None]
